FAERS Safety Report 19937603 (Version 2)
Quarter: 2021Q4

REPORT INFORMATION
  Report Type: Spontaneous
  Country: US (occurrence: None)
  Receive Date: 20211011
  Receipt Date: 20211115
  Transmission Date: 20220304
  Serious: No
  Sender: FDA-Public Use
  Company Number: 2021A734348

PATIENT
  Age: 92 Year
  Sex: Female

DRUGS (1)
  1. SYMBICORT [Suspect]
     Active Substance: BUDESONIDE\FORMOTEROL FUMARATE DIHYDRATE
     Dosage: 160/4.5 MG 2 PUFFS TWO TIMES A DAY
     Route: 055

REACTIONS (4)
  - Throat irritation [Unknown]
  - Oesophageal irritation [Unknown]
  - Product taste abnormal [Unknown]
  - Liquid product physical issue [Unknown]
